APPROVED DRUG PRODUCT: ROPINIROLE HYDROCHLORIDE
Active Ingredient: ROPINIROLE HYDROCHLORIDE
Strength: EQ 3MG BASE
Dosage Form/Route: TABLET, EXTENDED RELEASE;ORAL
Application: A200462 | Product #002
Applicant: AUROBINDO PHARMA USA INC
Approved: Oct 15, 2012 | RLD: No | RS: No | Type: DISCN